FAERS Safety Report 21398622 (Version 1)
Quarter: 2022Q3

REPORT INFORMATION
  Report Type: Report from Study
  Country: US (occurrence: US)
  Receive Date: 20220930
  Receipt Date: 20220930
  Transmission Date: 20221026
  Serious: No
  Sender: FDA-Public Use
  Company Number: US-ABBVIE-22K-163-4405114-00

PATIENT
  Sex: Female

DRUGS (2)
  1. HUMIRA [Suspect]
     Active Substance: ADALIMUMAB
     Indication: Ankylosing spondylitis
     Route: 058
  2. HUMIRA [Suspect]
     Active Substance: ADALIMUMAB
     Dosage: CITRATE FREE
     Route: 058

REACTIONS (6)
  - Rhinorrhoea [Unknown]
  - Headache [Unknown]
  - Pain [Not Recovered/Not Resolved]
  - Nausea [Recovered/Resolved]
  - Dermatitis acneiform [Not Recovered/Not Resolved]
  - Headache [Recovered/Resolved]
